FAERS Safety Report 5685052-3 (Version None)
Quarter: 2008Q1

REPORT INFORMATION
  Report Type: 
  Country: None (occurrence: None)
  Receive Date: 20080328
  Receipt Date: 19990818
  Transmission Date: 20080703
  Serious: Yes (Death)
  Sender: FDA-Public Use
  Company Number: US-ROCHE-213809

PATIENT
  Age: 63 Year
  Sex: Female
  Weight: 101.6 kg

DRUGS (8)
  1. XENICAL [Suspect]
     Indication: OBESITY
     Route: 048
     Dates: start: 19990625, end: 19990712
  2. PROZAC [Concomitant]
     Route: 048
     Dates: start: 19990607, end: 19990712
  3. CELEBREX [Concomitant]
     Indication: BACK PAIN
     Route: 048
     Dates: start: 19990301, end: 19990712
  4. MAXZIDE [Concomitant]
     Indication: HYPERTENSION
     Route: 048
     Dates: start: 19960101, end: 19990712
  5. PEPCID [Concomitant]
     Route: 048
     Dates: start: 19960101, end: 19990712
  6. MEVACOR [Concomitant]
     Route: 048
     Dates: start: 19960101, end: 19990712
  7. PERSANTINE [Concomitant]
     Route: 048
     Dates: start: 19960101, end: 19990712
  8. VICODIN [Concomitant]
     Indication: BACK PAIN
     Route: 048
     Dates: start: 19990301, end: 19990712

REACTIONS (1)
  - DEATH [None]
